FAERS Safety Report 12474735 (Version 1)
Quarter: 2016Q2

REPORT INFORMATION
  Report Type: Spontaneous
  Country: US (occurrence: None)
  Receive Date: 20160616
  Receipt Date: 20160616
  Transmission Date: 20160815
  Serious: Yes (Other)
  Sender: FDA-Public Use
  Company Number: None

PATIENT
  Age: 51 Year
  Sex: Female
  Weight: 72.58 kg

DRUGS (1)
  1. ATORVASTATIN, 40 MG [Suspect]
     Active Substance: ATORVASTATIN
     Indication: BLOOD CHOLESTEROL INCREASED
     Route: 048
     Dates: start: 20120410, end: 20160410

REACTIONS (3)
  - No therapeutic response [None]
  - Myalgia [None]
  - Muscle disorder [None]

NARRATIVE: CASE EVENT DATE: 20140410
